FAERS Safety Report 8540652-8 (Version None)
Quarter: 2012Q3

REPORT INFORMATION
  Report Type: 
  Country: None (occurrence: None)
  Receive Date: 20120726
  Receipt Date: 20120716
  Transmission Date: 20120928
  Serious: Yes (Life-Threatening, Other)
  Sender: FDA-Public Use
  Company Number: IT-BRISTOL-MYERS SQUIBB COMPANY-16772535

PATIENT
  Age: 79 Year
  Sex: Female

DRUGS (9)
  1. ENOXAPARIN SODIUM [Suspect]
     Indication: CEREBRAL ISCHAEMIA
     Dosage: 1DF=2 DOSES
     Route: 058
     Dates: start: 20120623, end: 20120710
  2. RAMIPRIL [Concomitant]
     Route: 048
  3. ALLOPURINOL [Concomitant]
     Route: 048
  4. NORVASC [Concomitant]
     Dosage: 1 DOSE
     Route: 048
  5. COUMADIN [Suspect]
     Indication: CEREBRAL ISCHAEMIA
     Dosage: 1DF=1 DOSE
     Route: 048
     Dates: start: 20120706, end: 20120710
  6. LASIX [Concomitant]
     Route: 048
  7. ESOPRAL [Concomitant]
     Dosage: 1 DOSE
     Route: 048
  8. CORDARONE [Concomitant]
     Dosage: 1DOSE
     Route: 048
  9. POTASSIUM CHLORIDE [Concomitant]
     Dosage: 1 DOSE
     Route: 048

REACTIONS (4)
  - ABDOMINAL WALL HAEMATOMA [None]
  - ANAEMIA [None]
  - RENAL FAILURE ACUTE [None]
  - HYPOVOLAEMIC SHOCK [None]
